FAERS Safety Report 10030711 (Version 2)
Quarter: 2014Q1

REPORT INFORMATION
  Report Type: Spontaneous
  Country: US (occurrence: US)
  Receive Date: 20140323
  Receipt Date: 20140323
  Transmission Date: 20141002
  Serious: No
  Sender: FDA-Public Use
  Company Number: US-ALLERGAN-1400707US

PATIENT
  Age: 42 Year
  Sex: Female

DRUGS (3)
  1. LATISSE 0.03% [Suspect]
     Indication: PRODUCT USED FOR UNKNOWN INDICATION
     Dosage: UNK
     Dates: start: 20140112, end: 20140114
  2. JUVEDERM [Concomitant]
     Indication: SKIN WRINKLING
     Dosage: .8 ML, SINGLE
     Dates: start: 20140111, end: 20140111
  3. JUVEDERM [Concomitant]
     Dosage: .2 ML, SINGLE

REACTIONS (1)
  - Skin discolouration [Not Recovered/Not Resolved]
